FAERS Safety Report 12140981 (Version 1)
Quarter: 2016Q1

REPORT INFORMATION
  Report Type: Spontaneous
  Country: US (occurrence: US)
  Receive Date: 20160303
  Receipt Date: 20160303
  Transmission Date: 20160526
  Serious: Yes (Other)
  Sender: FDA-Public Use
  Company Number: US-ELI_LILLY_AND_COMPANY-US201602009363

PATIENT
  Sex: Female

DRUGS (2)
  1. CYMBALTA [Suspect]
     Active Substance: DULOXETINE HYDROCHLORIDE
     Indication: DEPRESSION
  2. CYMBALTA [Suspect]
     Active Substance: DULOXETINE HYDROCHLORIDE
     Indication: PAIN
     Dosage: UNK, UNKNOWN
     Route: 065

REACTIONS (14)
  - Vision blurred [Unknown]
  - Weight increased [Unknown]
  - Nausea [Unknown]
  - Fatigue [Unknown]
  - Headache [Unknown]
  - Swelling [Unknown]
  - Confusional state [Unknown]
  - Nightmare [Unknown]
  - Pollakiuria [Unknown]
  - Suicidal ideation [Unknown]
  - Hot flush [Unknown]
  - Paraesthesia [Unknown]
  - Memory impairment [Unknown]
  - Drug withdrawal syndrome [Unknown]
